FAERS Safety Report 8070247-4 (Version None)
Quarter: 2012Q1

REPORT INFORMATION
  Report Type: 
  Country: None (occurrence: None)
  Receive Date: 20120125
  Receipt Date: 20120123
  Transmission Date: 20120608
  Serious: No
  Sender: FDA-Public Use
  Company Number: US-PFIZER INC-2012018731

PATIENT
  Sex: Female
  Weight: 64.399 kg

DRUGS (7)
  1. OMEPRAZOLE [Concomitant]
     Dosage: UNK
  2. VASOTEC [Concomitant]
     Dosage: UNK
  3. LIPITOR [Suspect]
     Indication: BLOOD CHOLESTEROL INCREASED
     Dosage: 20 MG, 1X/DAY
     Route: 048
  4. SIMVASTATIN [Suspect]
     Dosage: UNK
     Route: 048
     Dates: start: 20120108
  5. METFORMIN [Concomitant]
     Dosage: UNK
  6. ACTOS [Concomitant]
     Indication: BLOOD GLUCOSE INCREASED
     Dosage: UNK
  7. AMLODIPINE [Concomitant]
     Dosage: UNK

REACTIONS (3)
  - ASTHENIA [None]
  - NAUSEA [None]
  - SOMNOLENCE [None]
